FAERS Safety Report 12505546 (Version 1)
Quarter: 2016Q2

REPORT INFORMATION
  Report Type: Spontaneous
  Country: JP (occurrence: JP)
  Receive Date: 20160628
  Receipt Date: 20160628
  Transmission Date: 20160815
  Serious: Yes (Other)
  Sender: FDA-Public Use
  Company Number: PHJP2016JP017734

PATIENT
  Age: 82 Year
  Sex: Male

DRUGS (2)
  1. NILOTINIB [Suspect]
     Active Substance: NILOTINIB
     Indication: CHRONIC MYELOID LEUKAEMIA
     Dosage: 800 MG, UNK
     Route: 048
  2. NILOTINIB [Suspect]
     Active Substance: NILOTINIB
     Dosage: 600 MG, UNK
     Route: 048

REACTIONS (7)
  - Gastrointestinal haemorrhage [Unknown]
  - Bladder cancer [Unknown]
  - Second primary malignancy [Unknown]
  - Cerebral artery stenosis [Unknown]
  - Vertebral artery occlusion [Unknown]
  - Cerebral infarction [Unknown]
  - Carotid artery stenosis [Unknown]
